FAERS Safety Report 4538038-6 (Version None)
Quarter: 2004Q4

REPORT INFORMATION
  Report Type: 
  Country: None (occurrence: None)
  Receive Date: 20041223
  Receipt Date: 20041223
  Transmission Date: 20050328
  Serious: Yes (Other)
  Sender: FDA-Public Use
  Company Number: None

PATIENT
  Sex: Female

DRUGS (1)
  1. NUDERM BLENDER (4 % HYDROQUINONE USP) [Suspect]
     Indication: SKIN DISCOLOURATION
     Dosage: TOPICAL  1X DAY
     Route: 061
     Dates: start: 20041115, end: 20041215

REACTIONS (1)
  - DYSPNOEA [None]
